FAERS Safety Report 22872193 (Version 4)
Quarter: 2023Q4

REPORT INFORMATION
  Report Type: Spontaneous
  Country: FR (occurrence: FR)
  Receive Date: 20230828
  Receipt Date: 20231220
  Transmission Date: 20240110
  Serious: Yes (Other)
  Sender: FDA-Public Use
  Company Number: FR-BRISTOL-MYERS SQUIBB COMPANY-2023-120820

PATIENT
  Age: 76 Year
  Sex: Male

DRUGS (3)
  1. POMALIDOMIDE [Suspect]
     Active Substance: POMALIDOMIDE
     Indication: Plasma cell myeloma
  2. POMALIDOMIDE [Suspect]
     Active Substance: POMALIDOMIDE
  3. KETOCONAZOLE [Concomitant]
     Active Substance: KETOCONAZOLE
     Indication: Fungal infection

REACTIONS (5)
  - Myalgia [Unknown]
  - Erectile dysfunction [Unknown]
  - Fungal infection [Unknown]
  - Fatigue [Unknown]
  - Headache [Unknown]
